FAERS Safety Report 5245522-9 (Version None)
Quarter: 2007Q1

REPORT INFORMATION
  Report Type: 
  Country: None (occurrence: None)
  Receive Date: 20070223
  Receipt Date: 20070212
  Transmission Date: 20070707
  Serious: Yes (Hospitalization)
  Sender: FDA-Public Use
  Company Number: FR-PFIZER INC-2006145921

PATIENT
  Age: 60 Year
  Sex: Female
  Weight: 68 kg

DRUGS (13)
  1. DEXRAZOXANE HYDROCHLORIDE POWDER, STERILE [Suspect]
     Indication: ACUTE MYELOID LEUKAEMIA
     Route: 042
     Dates: start: 20060822, end: 20060824
  2. CYTARABINE [Suspect]
     Indication: ACUTE MYELOID LEUKAEMIA
     Route: 042
     Dates: start: 20060822, end: 20060828
  3. DAUNORUBICIN HCL [Suspect]
     Indication: ACUTE MYELOID LEUKAEMIA
     Route: 042
     Dates: start: 20060822, end: 20060824
  4. PRIMPERAN [Suspect]
     Indication: NAUSEA
     Route: 042
  5. PRIMPERAN [Suspect]
     Indication: VOMITING
  6. ZOFRAN [Suspect]
     Indication: NAUSEA
     Dosage: TEXT:2 DF
     Route: 042
     Dates: start: 20060822, end: 20060905
  7. ZOFRAN [Suspect]
     Indication: VOMITING
  8. VESANOID [Suspect]
     Indication: ACUTE MYELOID LEUKAEMIA
     Dosage: DAILY DOSE:80MG
     Route: 048
     Dates: start: 20060818, end: 20060905
  9. RANITIDINE [Concomitant]
  10. BROMAZEPAM [Concomitant]
  11. ACETAMINOPHEN [Concomitant]
  12. AMPHOTERICIN B [Concomitant]
     Route: 048
  13. RANITIDINE HYDROCHLORIDE [Concomitant]

REACTIONS (16)
  - ALANINE AMINOTRANSFERASE INCREASED [None]
  - ASPARTATE AMINOTRANSFERASE INCREASED [None]
  - GAMMA-GLUTAMYLTRANSFERASE INCREASED [None]
  - HAEMOPTYSIS [None]
  - HEPATIC ENZYME INCREASED [None]
  - HEPATIC FUNCTION ABNORMAL [None]
  - HYPOXIA [None]
  - INTERSTITIAL LUNG DISEASE [None]
  - PANCREATIC ENZYMES INCREASED [None]
  - PLEURAL EFFUSION [None]
  - PNEUMOCYSTIS JIROVECI INFECTION [None]
  - PNEUMONIA [None]
  - RENAL FAILURE ACUTE [None]
  - RESPIRATORY DISORDER [None]
  - RETINOIC ACID SYNDROME [None]
  - WEIGHT INCREASED [None]
